FAERS Safety Report 8186610-7 (Version None)
Quarter: 2012Q1

REPORT INFORMATION
  Report Type: 
  Country: None (occurrence: None)
  Receive Date: 20120306
  Receipt Date: 20120227
  Transmission Date: 20120608
  Serious: Yes (Hospitalization, Other)
  Sender: FDA-Public Use
  Company Number: US-BAYER-2011-104192

PATIENT
  Age: 20 Year
  Sex: Female
  Weight: 95 kg

DRUGS (3)
  1. YAZ [Suspect]
     Indication: PREMENSTRUAL SYNDROME
  2. YAZ [Suspect]
     Indication: ACNE
     Dosage: UNK
     Route: 048
     Dates: start: 20061001, end: 20090101
  3. ZYRTEC [Concomitant]
     Route: 048

REACTIONS (4)
  - GALLBLADDER DISORDER [None]
  - INJURY [None]
  - CHOLECYSTITIS ACUTE [None]
  - DISABILITY [None]
